FAERS Safety Report 4712384-5 (Version None)
Quarter: 2005Q3

REPORT INFORMATION
  Report Type: 
  Country: None (occurrence: None)
  Receive Date: 20050711
  Receipt Date: 20050628
  Transmission Date: 20060218
  Serious: Yes (Other)
  Sender: FDA-Public Use
  Company Number: 2005094723

PATIENT
  Age: 45 Year
  Sex: Female

DRUGS (2)
  1. DOXORUBICIN HCL [Suspect]
     Indication: BREAST CANCER IN SITU
     Dosage: UNKNOWN
     Route: 065
  2. CYCLOPHOSPHAMIDE [Suspect]
     Indication: BREAST CANCER IN SITU
     Dosage: UNKNOWN
     Route: 065

REACTIONS (7)
  - METASTASIS [None]
  - OEDEMA PERIPHERAL [None]
  - SCLERODERMA [None]
  - SKIN DISCOLOURATION [None]
  - SKIN INDURATION [None]
  - TENDERNESS [None]
  - THERAPY NON-RESPONDER [None]
